FAERS Safety Report 20032292 (Version 1)
Quarter: 2021Q4

REPORT INFORMATION
  Report Type: Spontaneous
  Country: AT (occurrence: AT)
  Receive Date: 20211103
  Receipt Date: 20211103
  Transmission Date: 20220303
  Serious: Yes (Hospitalization, Other)
  Sender: FDA-Public Use
  Company Number: AT-Merck Healthcare KGaA-9276301

PATIENT
  Age: 79 Year
  Sex: Male

DRUGS (3)
  1. ERBITUX [Suspect]
     Active Substance: CETUXIMAB
     Indication: Tongue neoplasm malignant stage unspecified
     Dosage: 400 MG/M2, UNK
     Route: 065
     Dates: start: 202008
  2. ERBITUX [Suspect]
     Active Substance: CETUXIMAB
     Dosage: 250 MG/M2, WEEKLY (1/W)
     Route: 065
     Dates: start: 202008, end: 202011
  3. PACLITAXEL [Concomitant]
     Active Substance: PACLITAXEL
     Indication: Tongue neoplasm malignant stage unspecified
     Dosage: 80 MG/M2, WEEKLY (1/W)
     Dates: start: 202008

REACTIONS (5)
  - Neuropathy peripheral [Unknown]
  - Anaemia [Unknown]
  - Pyrexia [Unknown]
  - Asthenia [Unknown]
  - Off label use [Unknown]

NARRATIVE: CASE EVENT DATE: 20200901
